FAERS Safety Report 15657909 (Version 1)
Quarter: 2018Q4

REPORT INFORMATION
  Report Type: Spontaneous
  Country: US (occurrence: US)
  Receive Date: 20181126
  Receipt Date: 20181126
  Transmission Date: 20190205
  Serious: Yes (Death)
  Sender: FDA-Public Use
  Company Number: None

PATIENT
  Age: 76 Year
  Sex: Female

DRUGS (2)
  1. TOBRAMYCIN. [Suspect]
     Active Substance: TOBRAMYCIN
     Indication: MYCOBACTERIAL INFECTION
     Dosage: ?          OTHER FREQUENCY:EVERY 12 HRS;OTHER ROUTE:INHALATION?
     Route: 055
     Dates: start: 20180308
  2. TOBRAMYCIN. [Suspect]
     Active Substance: TOBRAMYCIN
     Indication: LUNG INFECTION
     Dosage: ?          OTHER FREQUENCY:EVERY 12 HRS;OTHER ROUTE:INHALATION?
     Route: 055
     Dates: start: 20180308

REACTIONS (1)
  - Death [None]
